FAERS Safety Report 21503047 (Version 1)
Quarter: 2022Q4

REPORT INFORMATION
  Report Type: Report from Study
  Country: BR (occurrence: BR)
  Receive Date: 20221025
  Receipt Date: 20221025
  Transmission Date: 20230113
  Serious: Yes (Other)
  Sender: FDA-Public Use
  Company Number: BR-JNJFOC-20220448070

PATIENT
  Sex: Female
  Weight: 68 kg

DRUGS (3)
  1. SIMPONI [Suspect]
     Active Substance: GOLIMUMAB
     Indication: Psoriatic arthropathy
     Route: 058
     Dates: start: 20191128
  2. SIMPONI [Suspect]
     Active Substance: GOLIMUMAB
  3. PREGABALIN [Concomitant]
     Active Substance: PREGABALIN
     Indication: Depression

REACTIONS (10)
  - Haematochezia [Unknown]
  - Hiatus hernia [Unknown]
  - Gait inability [Unknown]
  - Gastritis [Unknown]
  - Weight decreased [Unknown]
  - Ulcer [Unknown]
  - Osteoporosis [Unknown]
  - Memory impairment [Unknown]
  - Urinary tract infection [Unknown]
  - Herpes virus infection [Recovered/Resolved]
